FAERS Safety Report 6193816-5 (Version None)
Quarter: 2009Q2

REPORT INFORMATION
  Report Type: 
  Country: None (occurrence: None)
  Receive Date: 20090514
  Receipt Date: 20090428
  Transmission Date: 20091009
  Serious: Yes (Other)
  Sender: FDA-Public Use
  Company Number: 20090137

PATIENT
  Age: 90 Year
  Sex: Male

DRUGS (1)
  1. DEXFERRUM [Suspect]
     Indication: IRON DEFICIENCY ANAEMIA
     Dosage: 25 MG TEST DOSE, INTRAVENOUS
     Route: 042
     Dates: start: 20090422

REACTIONS (3)
  - BACK PAIN [None]
  - CHEST PAIN [None]
  - HYPERVENTILATION [None]
